FAERS Safety Report 6133307-0 (Version None)
Quarter: 2009Q1

REPORT INFORMATION
  Report Type: 
  Country: None (occurrence: None)
  Receive Date: 20090325
  Receipt Date: 20090325
  Transmission Date: 20090719
  Serious: No
  Sender: FDA-Public Use
  Company Number: None

PATIENT
  Age: 3 Year
  Sex: Male
  Weight: 13.6079 kg

DRUGS (1)
  1. CARBAMAZEPINE [Suspect]
     Indication: CONVULSION
     Dosage: 1/2 TAB TWICE DAILY PO
     Route: 048
     Dates: start: 20090319, end: 20090323

REACTIONS (6)
  - AURICULAR SWELLING [None]
  - INSOMNIA [None]
  - RASH ERYTHEMATOUS [None]
  - RASH GENERALISED [None]
  - SCRATCH [None]
  - SCREAMING [None]
